FAERS Safety Report 20499492 (Version 2)
Quarter: 2022Q2

REPORT INFORMATION
  Report Type: Spontaneous
  Country: FR (occurrence: FR)
  Receive Date: 20220222
  Receipt Date: 20220429
  Transmission Date: 20220721
  Serious: Yes (Hospitalization)
  Sender: FDA-Public Use
  Company Number: FR-AFSSAPS-SE20220185

PATIENT
  Age: 73 Year
  Sex: Female
  Weight: 53.6 kg

DRUGS (3)
  1. METFORMIN [Suspect]
     Active Substance: METFORMIN HYDROCHLORIDE
     Indication: Type 2 diabetes mellitus
     Dosage: 1000 MILLIGRAM, DAILY, 500 MORNING AND NOON
     Route: 048
     Dates: end: 20220128
  2. IOBITRIDOL [Interacting]
     Active Substance: IOBITRIDOL
     Indication: Computerised tomogram
     Dosage: UNK
     Route: 042
     Dates: start: 20220121, end: 20220121
  3. IOBITRIDOL [Interacting]
     Active Substance: IOBITRIDOL
     Dosage: 80CC, UNK
     Route: 042
     Dates: start: 20220127, end: 20220127

REACTIONS (3)
  - Lactic acidosis [Recovered/Resolved]
  - Product prescribing error [Recovered/Resolved]
  - Labelled drug-drug interaction medication error [Recovered/Resolved]

NARRATIVE: CASE EVENT DATE: 20220121
